FAERS Safety Report 20082336 (Version 1)
Quarter: 2021Q4

REPORT INFORMATION
  Report Type: Spontaneous
  Country: US (occurrence: None)
  Receive Date: 20211117
  Receipt Date: 20211117
  Transmission Date: 20220303
  Serious: Yes (Other)
  Sender: FDA-Public Use
  Company Number: None

PATIENT
  Age: 29 Year
  Sex: Female
  Weight: 53.1 kg

DRUGS (5)
  1. BENZOYL PEROXIDE [Suspect]
     Active Substance: BENZOYL PEROXIDE
     Indication: Acne
  2. SALICYLIC ACID [Suspect]
     Active Substance: SALICYLIC ACID
  3. CALCIUM\VITAMIN D [Suspect]
     Active Substance: CALCIUM\VITAMIN D
  4. FEXOFENADINE [Concomitant]
     Active Substance: FEXOFENADINE HYDROCHLORIDE
  5. VITAMINS [Concomitant]
     Active Substance: VITAMINS

REACTIONS (1)
  - Angioedema [None]

NARRATIVE: CASE EVENT DATE: 20211114
